FAERS Safety Report 6849600-X (Version None)
Quarter: 2010Q3

REPORT INFORMATION
  Report Type: 
  Country: None (occurrence: None)
  Receive Date: 20100716
  Receipt Date: 20071001
  Transmission Date: 20110219
  Serious: No
  Sender: FDA-Public Use
  Company Number: US-PFIZER INC-2007083508

PATIENT
  Sex: Female
  Weight: 93.181 kg

DRUGS (15)
  1. CHANTIX [Suspect]
     Indication: SMOKING CESSATION THERAPY
     Route: 048
     Dates: start: 20070923
  2. VITAMIN B [Concomitant]
     Route: 048
  3. VITAMIN C [Concomitant]
     Route: 048
  4. VITAMIN E [Concomitant]
     Route: 048
  5. CALCIUM WITH VITAMIN D [Concomitant]
     Route: 048
  6. ALPRAZOLAM [Concomitant]
     Route: 048
  7. LISINOPRIL [Concomitant]
     Route: 048
  8. ACETYLSALICYLIC ACID [Concomitant]
     Route: 048
  9. ADVAIR DISKUS 100/50 [Concomitant]
     Route: 048
  10. FUROSEMIDE [Concomitant]
     Route: 048
  11. XOPENEX [Concomitant]
     Route: 055
  12. IPRATROPIUM [Concomitant]
     Route: 055
  13. XALATAN [Concomitant]
     Route: 048
  14. METHIMAZOLE [Concomitant]
     Route: 048
  15. FLONASE [Concomitant]
     Route: 031

REACTIONS (3)
  - DYSGEUSIA [None]
  - NAUSEA [None]
  - VOMITING [None]
